FAERS Safety Report 25735426 (Version 1)
Quarter: 2025Q3

REPORT INFORMATION
  Report Type: Spontaneous
  Country: US (occurrence: None)
  Receive Date: 20250828
  Receipt Date: 20250828
  Transmission Date: 20251020
  Serious: No
  Sender: FDA-CTU
  Company Number: None

PATIENT
  Age: 71 Year
  Sex: Female
  Weight: 51.26 kg

DRUGS (1)
  1. HUMIRA [Suspect]
     Active Substance: ADALIMUMAB
     Indication: Psoriatic arthropathy
     Dosage: OTHER STRENGTH : 40 MG/0.8ML PEN 40;?FREQUENCY : EVERY OTHER WEEK;?
     Route: 058
     Dates: start: 202507

REACTIONS (1)
  - Cataract operation [None]
